FAERS Safety Report 4966203-2 (Version None)
Quarter: 2006Q2

REPORT INFORMATION
  Report Type: 
  Country: None (occurrence: None)
  Receive Date: 20060407
  Receipt Date: 20050713
  Transmission Date: 20061013
  Serious: Yes (Hospitalization)
  Sender: FDA-Public Use
  Company Number: US-MERCK-0507USA01797

PATIENT
  Age: 51 Year
  Sex: Female
  Weight: 71 kg

DRUGS (1)
  1. VIOXX [Suspect]
     Indication: ARTHRITIS
     Route: 048
     Dates: start: 20020308, end: 20040501

REACTIONS (14)
  - ASTHENIA [None]
  - BLOOD PRESSURE [None]
  - CHEST PAIN [None]
  - DIABETES MELLITUS [None]
  - DROOLING [None]
  - DYSPNOEA [None]
  - FACIAL PALSY [None]
  - HYPERTENSION [None]
  - HYPOACUSIS [None]
  - HYPOAESTHESIA [None]
  - HYPOAESTHESIA ORAL [None]
  - PAIN IN EXTREMITY [None]
  - SKIN LACERATION [None]
  - SLEEP DISORDER [None]
